FAERS Safety Report 15725700 (Version 2)
Quarter: 2019Q1

REPORT INFORMATION
  Report Type: Spontaneous
  Country: US (occurrence: US)
  Receive Date: 20181215
  Receipt Date: 20190305
  Transmission Date: 20190417
  Serious: No
  Sender: FDA-Public Use
  Company Number: US-PRINSTON PHARMACEUTICAL INC.-2018PRN01500

PATIENT
  Age: 51 Year
  Sex: Female
  Weight: 73.47 kg

DRUGS (4)
  1. DULOXETINE. [Suspect]
     Active Substance: DULOXETINE
     Indication: DEPRESSION
     Dosage: UNK
     Route: 048
  2. DULOXETINE. [Suspect]
     Active Substance: DULOXETINE
     Indication: NEUROPATHY PERIPHERAL
     Dosage: 30 MG
     Route: 048
     Dates: start: 20181004, end: 20181008
  3. TRILEPTAL [Concomitant]
     Active Substance: OXCARBAZEPINE
  4. DULOXETINE. [Suspect]
     Active Substance: DULOXETINE
     Indication: PAIN

REACTIONS (7)
  - Unevaluable event [Recovered/Resolved]
  - Product substitution issue [Recovered/Resolved]
  - Neuropathy peripheral [Unknown]
  - Depression [Unknown]
  - Pain [Unknown]
  - Anxiety [Recovered/Resolved]
  - Mania [Recovered/Resolved]

NARRATIVE: CASE EVENT DATE: 20181004
